FAERS Safety Report 7539886-0 (Version None)
Quarter: 2011Q2

REPORT INFORMATION
  Report Type: 
  Country: None (occurrence: None)
  Receive Date: 20110610
  Receipt Date: 20110607
  Transmission Date: 20111010
  Serious: Yes (Hospitalization)
  Sender: FDA-Public Use
  Company Number: NL-PFIZER INC-2011124319

PATIENT
  Age: 56 Year
  Sex: Male
  Weight: 100 kg

DRUGS (14)
  1. LACTULOSE [Concomitant]
     Dosage: 30 ML, 2X/DAY
  2. LISINOPRIL [Concomitant]
     Dosage: 20 MG, 1X/DAY
  3. HYDROCHLOROTHIAZIDE [Concomitant]
     Dosage: 12.5 MG, 1X/DAY
  4. FLIXOTIDE ^ALLEN + HANBURYS^ [Concomitant]
     Dosage: 1 DF, 2X/DAY
  5. ACETYLSALICYLIC ACID [Concomitant]
     Dosage: 80 MG, 1X/DAY
  6. KLEAN PREP [Concomitant]
     Dosage: 500 ML, 1X/DAY
  7. CALCIUM CARBONATE [Concomitant]
  8. PANTOPRAZOLE [Concomitant]
     Dosage: 20 MG, 1X/DAY
  9. PRASUGREL [Concomitant]
     Dosage: 1 DF, 1X/DAY
  10. COLECALCIFEROL [Concomitant]
     Dosage: 800 IU, 1X/DAY
  11. RELISTOR [Suspect]
     Indication: CONSTIPATION
     Dosage: 0.6 ML, 1X/DAY
     Route: 058
     Dates: start: 20110526
  12. NOVOMIX [Concomitant]
     Indication: TYPE 2 DIABETES MELLITUS
     Dosage: 40 IU, 2X/DAY
  13. DULOXETINE [Concomitant]
     Dosage: 60 MG, 2X/DAY
  14. METHADONE [Concomitant]
     Dosage: 10 MG, 3X/DAY

REACTIONS (1)
  - HYPOGLYCAEMIA [None]
